FAERS Safety Report 23147341 (Version 3)
Quarter: 2023Q4

REPORT INFORMATION
  Report Type: Spontaneous
  Country: US (occurrence: None)
  Receive Date: 20231106
  Receipt Date: 20231121
  Transmission Date: 20240110
  Serious: No
  Sender: FDA-Public Use
  Company Number: 2023A248252

PATIENT
  Sex: Male

DRUGS (1)
  1. CALQUENCE [Suspect]
     Active Substance: ACALABRUTINIB
     Indication: Mantle cell lymphoma
     Route: 048

REACTIONS (6)
  - Choking [Unknown]
  - Throat irritation [Unknown]
  - Oropharyngeal pain [Unknown]
  - Product use complaint [Unknown]
  - Thermal burn [Unknown]
  - Dysphagia [Unknown]
